FAERS Safety Report 15333628 (Version 2)
Quarter: 2018Q3

REPORT INFORMATION
  Report Type: Report from Study
  Country: US (occurrence: US)
  Receive Date: 20180830
  Receipt Date: 20180918
  Transmission Date: 20181010
  Serious: Yes (Other)
  Sender: FDA-Public Use
  Company Number: PHHY2018US080526

PATIENT
  Sex: Female

DRUGS (2)
  1. PREDNISONE. [Suspect]
     Active Substance: PREDNISONE
     Indication: PRODUCT USED FOR UNKNOWN INDICATION
     Dosage: UNK
     Route: 065
  2. XOLAIR [Suspect]
     Active Substance: OMALIZUMAB
     Indication: IDIOPATHIC URTICARIA
     Dosage: UNK
     Route: 065

REACTIONS (11)
  - Joint swelling [Not Recovered/Not Resolved]
  - Gait disturbance [Unknown]
  - Anxiety [Unknown]
  - Urticaria [Not Recovered/Not Resolved]
  - Painful respiration [Unknown]
  - Back pain [Unknown]
  - Rash [Unknown]
  - Arthritis [Unknown]
  - Pain [Unknown]
  - Memory impairment [Not Recovered/Not Resolved]
  - Bone disorder [Unknown]
